FAERS Safety Report 4648719-1 (Version None)
Quarter: 2005Q2

REPORT INFORMATION
  Report Type: 
  Country: None (occurrence: None)
  Receive Date: 20050427
  Receipt Date: 20050408
  Transmission Date: 20051028
  Serious: Yes (Hospitalization)
  Sender: FDA-Public Use
  Company Number: USA050393468

PATIENT
  Sex: Male

DRUGS (7)
  1. ALIMTA [Suspect]
     Indication: NON-SMALL CELL LUNG CANCER
  2. FOLIC ACID [Concomitant]
  3. VITAMIN B-12 [Concomitant]
  4. PROCARDIA(NIFEDIPINE PA) [Concomitant]
  5. BENICAR [Concomitant]
  6. PROSCAR [Concomitant]
  7. VALIUM [Concomitant]

REACTIONS (2)
  - CELLULITIS [None]
  - RASH MACULAR [None]
